FAERS Safety Report 8181170-9 (Version None)
Quarter: 2012Q1

REPORT INFORMATION
  Report Type: 
  Country: None (occurrence: None)
  Receive Date: 20120302
  Receipt Date: 20120227
  Transmission Date: 20120608
  Serious: Yes (Other)
  Sender: FDA-Public Use
  Company Number: US-GLAXOSMITHKLINE-A0967669A

PATIENT
  Age: 52 Year
  Sex: Male

DRUGS (2)
  1. RAMIPRIL [Concomitant]
  2. COREG CR [Suspect]
     Indication: EJECTION FRACTION DECREASED
     Dosage: 80MG PER DAY
     Route: 048
     Dates: start: 20080401

REACTIONS (5)
  - PSORIASIS [None]
  - PRURITUS [None]
  - DIZZINESS [None]
  - URTICARIA [None]
  - ARTHRALGIA [None]
